FAERS Safety Report 10748093 (Version 1)
Quarter: 2015Q1

REPORT INFORMATION
  Report Type: Spontaneous
  Country: FR (occurrence: None)
  Receive Date: 20150127
  Receipt Date: 20150127
  Transmission Date: 20150721
  Serious: Yes (Life-Threatening)
  Sender: FDA-Public Use
  Company Number: 2015AMD00008

PATIENT
  Age: 59 Year
  Sex: Male

DRUGS (1)
  1. EPINEPHRINE (EPINEPHRINE) INTRAVENOUS [Suspect]
     Active Substance: EPINEPHRINE HYDROCHLORIDE
     Indication: ANAPHYLACTIC SHOCK
     Route: 042

REACTIONS (4)
  - Ventricular fibrillation [None]
  - Supraventricular tachycardia [None]
  - Multi-organ failure [None]
  - Cardiac arrest [None]
